FAERS Safety Report 17455159 (Version 1)
Quarter: 2020Q1

REPORT INFORMATION
  Report Type: Spontaneous
  Country: US (occurrence: US)
  Receive Date: 20200212
  Receipt Date: 20200212
  Transmission Date: 20200409
  Serious: No
  Sender: FDA-Public Use
  Company Number: None

PATIENT
  Age: 61 Year
  Sex: Female

DRUGS (1)
  1. CAPECITABINE. [Suspect]
     Active Substance: CAPECITABINE
     Indication: GALLBLADDER CANCER
     Dates: start: 20200207

REACTIONS (4)
  - Vertigo [None]
  - Dizziness [None]
  - Palmar-plantar erythrodysaesthesia syndrome [None]
  - Sleep disorder [None]

NARRATIVE: CASE EVENT DATE: 20200207
